FAERS Safety Report 8702233 (Version 2)
Quarter: 2012Q4

REPORT INFORMATION
  Report Type: 
  Country: JP (occurrence: JP)
  Receive Date: 20120803
  Receipt Date: 20121120
  Transmission Date: 20130627
  Serious: Yes (Hospitalization)
  Sender: FDA-Public Use
  Company Number: JP-EISAI INC-E2090-02239-SPO-JP

PATIENT
  Age: 75 Year
  Sex: Male

DRUGS (8)
  1. TRERIEF [Suspect]
     Indication: PARKINSON^S DISEASE
     Dosage: 25 mg daily
     Route: 048
     Dates: start: 20120626, end: 20120627
  2. MENESIT [Suspect]
     Indication: PARKINSON^S DISEASE
     Dosage: 300 mg daily
     Route: 048
     Dates: start: 20100816
  3. ALOSENN [Concomitant]
     Indication: CONSTIPATION
  4. THEODUR [Concomitant]
     Indication: ASTHMA BRONCHIAL
  5. NORVASC [Concomitant]
     Indication: HYPERTENSION
  6. PLAVIX [Concomitant]
     Indication: LACUNAR INFARCTION
  7. URIEF [Concomitant]
     Indication: PROSTATIC HYPERPLASIA
  8. LONGES [Concomitant]
     Indication: HYPERTENSION

REACTIONS (1)
  - Rhabdomyolysis [Recovered/Resolved]
